FAERS Safety Report 19380765 (Version 2)
Quarter: 2022Q4

REPORT INFORMATION
  Report Type: Spontaneous
  Country: DE (occurrence: DE)
  Receive Date: 20210607
  Receipt Date: 20221028
  Transmission Date: 20230113
  Serious: Yes (Hospitalization)
  Sender: FDA-Public Use
  Company Number: DE-ADRED-06438-01

PATIENT
  Age: 81 Year
  Sex: Male

DRUGS (14)
  1. PREDNISOLONE [Suspect]
     Active Substance: PREDNISOLONE
     Dosage: 5 MG, 1-0-0-0, TABLETS
  2. CLOPIDOGREL BISULFATE [Suspect]
     Active Substance: CLOPIDOGREL BISULFATE
     Dosage: 75 MG, 1-0-0-0, TABLETS
  3. METHOTREXATE [Suspect]
     Active Substance: METHOTREXATE
     Dosage: 20 MG / ML, 1 TIME A WEEK IN THE MORNING
  4. ATORVASTATIN CALCIUM\EZETIMIBE [Concomitant]
     Active Substance: ATORVASTATIN CALCIUM\EZETIMIBE
     Dosage: 10 | 10 MG, 0-0-1-0, TABLETS
  5. METAMIZOLE [Concomitant]
     Active Substance: METAMIZOLE
     Dosage: 500 MG, IF NECESSARY IN THE MORNING AND AT NIGHT, TABLETS
  6. FOLIC ACID [Concomitant]
     Active Substance: FOLIC ACID
     Dosage: 5 MG, 1 TIME A WEEK IN THE MORNING, TABLETS
  7. IVABRADINE [Concomitant]
     Active Substance: IVABRADINE
     Dosage: 5 MG, 1-0-1-0, TABLETS
  8. BUDESONIDE [Concomitant]
     Active Substance: BUDESONIDE
     Dosage: 1-0-1-0, INHALATION POWDER
     Route: 055
  9. VALSARTAN [Concomitant]
     Active Substance: VALSARTAN
     Dosage: 80 MG, 1-0-0-0, TABLETS
  10. CHOLECALCIFEROL [Concomitant]
     Active Substance: CHOLECALCIFEROL
     Dosage: 25 (UNITS NOT CLEAR), 1-0-0-0, TABLETS
  11. SPIRIVA [Concomitant]
     Active Substance: TIOTROPIUM BROMIDE MONOHYDRATE
     Dosage: 18 (UNITS NOT CLEAR), 1-0-0-0, CAPSULES FOR INHALATION
     Route: 055
  12. PANTOPRAZOLE [Concomitant]
     Active Substance: PANTOPRAZOLE
     Dosage: 40 MG, 1-0-0-0, TABLETS
  13. METAMIZOL [Concomitant]
     Active Substance: METAMIZOLE SODIUM
     Dosage: 500 MG, IF NECESSARY IN THE MORNING AND AT NIGHT, TABLETS; PRN
  14. FOLIC ACID [Concomitant]
     Active Substance: FOLIC ACID
     Dosage: 5 MG, QW

REACTIONS (3)
  - Dyspnoea [Unknown]
  - Iron deficiency anaemia [Unknown]
  - Dyspnoea exertional [Unknown]

NARRATIVE: CASE EVENT DATE: 20210302
